FAERS Safety Report 4421124-9 (Version None)
Quarter: 2004Q3

REPORT INFORMATION
  Report Type: 
  Country: None (occurrence: None)
  Receive Date: 20040707
  Receipt Date: 20040315
  Transmission Date: 20050211
  Serious: Yes (Other)
  Sender: FDA-Public Use
  Company Number: 344532

PATIENT
  Age: 45 Year
  Sex: Male
  Weight: 70.3 kg

DRUGS (5)
  1. FUZEON [Suspect]
     Dosage: SUBCUTANEOUS
     Route: 058
     Dates: start: 20030715
  2. ANTIRETROVIRALS (ANTIRETROVIRALS) [Concomitant]
  3. KALETRA [Concomitant]
  4. BCTRIM (SULFAMETHOXAZOLE/TRIMETHOPRIM) [Concomitant]
  5. ZERIT [Concomitant]

REACTIONS (6)
  - APPLICATION SITE REACTION [None]
  - DYSARTHRIA [None]
  - FEELING ABNORMAL [None]
  - INJECTION SITE PRURITUS [None]
  - LIPIDS INCREASED [None]
  - MEDICATION ERROR [None]
